FAERS Safety Report 14913689 (Version 11)
Quarter: 2019Q2

REPORT INFORMATION
  Report Type: Spontaneous
  Country: CA (occurrence: CA)
  Receive Date: 20180518
  Receipt Date: 20190604
  Transmission Date: 20190711
  Serious: Yes (Other)
  Sender: FDA-Public Use
  Company Number: CA-CELLTRION INC.-2018CA019816

PATIENT

DRUGS (11)
  1. INFLECTRA [Suspect]
     Active Substance: INFLIXIMAB-DYYB
     Indication: CROHN^S DISEASE
     Dosage: 400 MG, 2, 6, THEN EVERY 8 WEEKS
     Route: 042
     Dates: start: 20180427
  2. INFLECTRA [Suspect]
     Active Substance: INFLIXIMAB-DYYB
     Dosage: 400 MG, 2, 6, THEN EVERY 8 WEEKS
     Route: 042
     Dates: start: 20181130
  3. MORPHINE [Concomitant]
     Active Substance: MORPHINE
     Dosage: 3 MG, 3 TIMES DAILY
  4. MS CONTIN [Concomitant]
     Active Substance: MORPHINE SULFATE
     Indication: PAIN
     Dosage: UNK
     Dates: end: 2019
  5. INFLECTRA [Suspect]
     Active Substance: INFLIXIMAB-DYYB
     Dosage: 400 MG, 2, 6, THEN EVERY 8 WEEKS
     Route: 042
     Dates: start: 20180607
  6. INFLECTRA [Suspect]
     Active Substance: INFLIXIMAB-DYYB
     Dosage: 400 MG, 2, 6, THEN EVERY 8 WEEKS
     Route: 042
     Dates: start: 20180511
  7. INFLECTRA [Suspect]
     Active Substance: INFLIXIMAB-DYYB
     Dosage: 400 MG, 2, 6, THEN EVERY 8 WEEKS
     Route: 042
     Dates: start: 20180802
  8. INFLECTRA [Suspect]
     Active Substance: INFLIXIMAB-DYYB
     Dosage: 5 MG/KG, EVERY 8 WEEKS
     Route: 042
     Dates: start: 20190328
  9. INFLECTRA [Suspect]
     Active Substance: INFLIXIMAB-DYYB
     Dosage: 400 MG, 2, 6, THEN EVERY 8 WEEKS
     Route: 042
     Dates: start: 20190129
  10. INFLECTRA [Suspect]
     Active Substance: INFLIXIMAB-DYYB
     Dosage: 400 MG, UNK
     Route: 042
     Dates: start: 20190523
  11. INFLECTRA [Suspect]
     Active Substance: INFLIXIMAB-DYYB
     Dosage: 400 MG, 2, 6, THEN EVERY 8 WEEKS
     Route: 042
     Dates: start: 20181005

REACTIONS (14)
  - Anal fissure [Unknown]
  - Asthenia [Unknown]
  - Anal abscess [Unknown]
  - Haemorrhage [Unknown]
  - Arthralgia [Unknown]
  - Body temperature fluctuation [Unknown]
  - Insomnia [Unknown]
  - Heart rate irregular [Unknown]
  - Intestinal obstruction [Unknown]
  - Fatigue [Unknown]
  - Weight increased [Unknown]
  - Nasopharyngitis [Recovered/Resolved]
  - Sleep deficit [Unknown]
  - Condition aggravated [Unknown]

NARRATIVE: CASE EVENT DATE: 20180507
